FAERS Safety Report 7714875-1 (Version None)
Quarter: 2011Q3

REPORT INFORMATION
  Report Type: 
  Country: None (occurrence: None)
  Receive Date: 20110810
  Receipt Date: 20110630
  Transmission Date: 20111222
  Serious: No
  Sender: FDA-Public Use
  Company Number: 1000021668

PATIENT
  Age: 23 Year
  Sex: Male

DRUGS (7)
  1. AMBIEN [Concomitant]
  2. SAVELLA [Suspect]
     Indication: NEURALGIA
     Dosage: 12.5 MG (12.5 MG, 1 IN 1 D), ORAL 25 MG (12.5 MG, 2 IN 1 D), ORAL 50 MG (25 MG, 2 IN 1 D), ORAL
     Route: 048
     Dates: start: 20110201, end: 20110201
  3. SAVELLA [Suspect]
     Indication: NEURALGIA
     Dosage: 12.5 MG (12.5 MG, 1 IN 1 D), ORAL 25 MG (12.5 MG, 2 IN 1 D), ORAL 50 MG (25 MG, 2 IN 1 D), ORAL
     Route: 048
     Dates: start: 20110201, end: 20110201
  4. SAVELLA [Suspect]
     Indication: NEURALGIA
     Dosage: 12.5 MG (12.5 MG, 1 IN 1 D), ORAL 25 MG (12.5 MG, 2 IN 1 D), ORAL 50 MG (25 MG, 2 IN 1 D), ORAL
     Route: 048
     Dates: start: 20110201, end: 20110201
  5. SAVELLA [Suspect]
     Indication: NEURALGIA
     Dosage: 100 MG(50 MG, 2 IN 1 D), ORAL
     Route: 048
     Dates: start: 20110201, end: 20110615
  6. MOTRIN (IBURPROFEN) (IBUPROFEN) [Concomitant]
  7. ZANAFLEX (TIZANIDINE HYDROCHLORIDE) (TIZANIDINE HYDROCHLORIDE) [Concomitant]

REACTIONS (1)
  - UNEVALUABLE EVENT [None]
